FAERS Safety Report 5314332-6 (Version None)
Quarter: 2007Q2

REPORT INFORMATION
  Report Type: 
  Country: None (occurrence: None)
  Receive Date: 20070502
  Receipt Date: 20070423
  Transmission Date: 20071010
  Serious: Yes (Disabling)
  Sender: FDA-Public Use
  Company Number: TW-JNJFOC-20070306953

PATIENT
  Age: 80 Year
  Sex: Male

DRUGS (1)
  1. SPORANOX [Suspect]
     Indication: HYPERKERATOSIS
     Route: 048
     Dates: start: 20060912, end: 20060919

REACTIONS (1)
  - FATIGUE [None]
